FAERS Safety Report 6478482-3 (Version None)
Quarter: 2009Q4

REPORT INFORMATION
  Report Type: 
  Country: None (occurrence: None)
  Receive Date: 20091207
  Receipt Date: 20090901
  Transmission Date: 20100525
  Serious: No
  Sender: FDA-Public Use
  Company Number: US-AMGEN-KDL331480

PATIENT
  Sex: Female

DRUGS (10)
  1. ENBREL [Suspect]
     Indication: RHEUMATOID ARTHRITIS
     Route: 058
     Dates: start: 20080723
  2. SULFASALAZINE [Concomitant]
     Route: 048
  3. PREDNISONE [Concomitant]
  4. RANITIDINE [Concomitant]
  5. OXYBUTYNIN CHLORIDE [Concomitant]
  6. IBUPROFEN [Concomitant]
  7. POTASSIUM CHLORIDE [Concomitant]
  8. CALCIUM WITH VITAMIN D [Concomitant]
  9. MAGNESIUM [Concomitant]
  10. MULTI-VITAMINS [Concomitant]

REACTIONS (1)
  - URINARY TRACT INFECTION PSEUDOMONAL [None]
